FAERS Safety Report 9060387 (Version 5)
Quarter: 2013Q3

REPORT INFORMATION
  Report Type: Spontaneous
  Country: US (occurrence: US)
  Receive Date: 20130212
  Receipt Date: 20130820
  Transmission Date: 20140515
  Serious: Yes (Hospitalization, Disabling, Other)
  Sender: FDA-Public Use
  Company Number: US-009507513-1302USA004387

PATIENT
  Sex: Female
  Weight: 52.15 kg

DRUGS (5)
  1. FOSAMAX [Suspect]
     Indication: OSTEOPOROSIS
     Dosage: 10 MG, UNK
     Route: 048
     Dates: start: 1996
  2. FOSAMAX [Suspect]
     Dosage: 70 MG, UNK
     Route: 048
  3. FOSAMAX PLUS D [Suspect]
     Dosage: 70 MG, QW
     Route: 048
  4. ALENDRONATE SODIUM [Suspect]
     Indication: OSTEOPOROSIS
     Dosage: 70 MG, UNK
     Route: 048
     Dates: end: 201202
  5. OMEPRAZOLE [Concomitant]
     Indication: GASTROOESOPHAGEAL REFLUX DISEASE
     Dosage: 20 MG, QD
     Route: 048
     Dates: start: 2007

REACTIONS (28)
  - Intramedullary rod insertion [Unknown]
  - Medical device removal [Unknown]
  - Surgery [Unknown]
  - Intramedullary rod insertion [Unknown]
  - Femur fracture [Recovered/Resolved]
  - Femur fracture [Unknown]
  - Back pain [Not Recovered/Not Resolved]
  - Bone disorder [Unknown]
  - Bladder disorder [Unknown]
  - Fungal infection [Unknown]
  - Dyskinesia oesophageal [Not Recovered/Not Resolved]
  - Osteopenia [Unknown]
  - Compression fracture [Unknown]
  - Kyphosis [Unknown]
  - Spinal column stenosis [Unknown]
  - Spinal osteoarthritis [Unknown]
  - Radiculitis cervical [Unknown]
  - Iliotibial band syndrome [Unknown]
  - Arthritis [Unknown]
  - Goitre [Unknown]
  - Meniscus injury [Unknown]
  - Spinal osteoarthritis [Unknown]
  - Osteoarthritis [Unknown]
  - Intervertebral disc degeneration [Unknown]
  - Scoliosis [Unknown]
  - Eye operation [Unknown]
  - Tonsillectomy [Unknown]
  - Dysphagia [Not Recovered/Not Resolved]
